FAERS Safety Report 15800671 (Version 3)
Quarter: 2020Q1

REPORT INFORMATION
  Report Type: Report from Study
  Country: DE (occurrence: DE)
  Receive Date: 20190109
  Receipt Date: 20200315
  Transmission Date: 20200409
  Serious: Yes (Hospitalization)
  Sender: FDA-Public Use
  Company Number: DE-BRISTOL-MYERS SQUIBB COMPANY-BMS-2018-035097

PATIENT
  Age: 58 Year
  Sex: Male

DRUGS (9)
  1. NIVOLUMAB [Suspect]
     Active Substance: NIVOLUMAB
     Indication: PRODUCT USED FOR UNKNOWN INDICATION
     Dosage: 240 MG, Q4WK
     Route: 042
     Dates: start: 20180813, end: 20180813
  2. CANDESARTAN. [Concomitant]
     Active Substance: CANDESARTAN
     Indication: CARDIOVASCULAR DISORDER
     Dosage: 16 MG, UNK
     Route: 065
     Dates: start: 20170416
  3. CANDESARTAN. [Concomitant]
     Active Substance: CANDESARTAN
     Indication: CEREBROVASCULAR DISORDER
     Route: 065
  4. NIVOLUMAB [Suspect]
     Active Substance: NIVOLUMAB
     Indication: METASTATIC RENAL CELL CARCINOMA
     Dosage: 480 MG, Q4WK
     Route: 042
     Dates: start: 20180507, end: 20180703
  5. NIVOLUMAB [Suspect]
     Active Substance: NIVOLUMAB
     Indication: PRODUCT USED FOR UNKNOWN INDICATION
     Dosage: 3 MG/KG, Q2WK
     Route: 042
     Dates: start: 20171107, end: 20171107
  6. CELIPRO LICH [Concomitant]
     Indication: CEREBROVASCULAR DISORDER
     Route: 065
  7. ELACUTAN [Concomitant]
     Indication: PROPHYLAXIS
     Dosage: UNK
     Route: 065
  8. PANTOZOL [Concomitant]
     Active Substance: PANTOPRAZOLE SODIUM
     Indication: PROPHYLAXIS
     Dosage: 20 MG, UNK
     Route: 065
     Dates: start: 20170416
  9. CELIPRO LICH [Concomitant]
     Indication: CARDIOVASCULAR DISORDER
     Dosage: 200 MG, UNK
     Route: 065

REACTIONS (7)
  - Weight increased [Unknown]
  - Off label use [Unknown]
  - Psoriasis [Unknown]
  - Skin disorder [Unknown]
  - Arthropathy [Unknown]
  - Thirst [Unknown]
  - Skin lesion [Unknown]

NARRATIVE: CASE EVENT DATE: 201802
